FAERS Safety Report 16796671 (Version 1)
Quarter: 2019Q3

REPORT INFORMATION
  Report Type: Report from Study
  Country: US (occurrence: US)
  Receive Date: 20190911
  Receipt Date: 20190911
  Transmission Date: 20191005
  Serious: Yes (Hospitalization)
  Sender: FDA-Public Use
  Company Number: US-BAUSCH-BL-2019-025612

PATIENT
  Sex: Male
  Weight: 83.99 kg

DRUGS (6)
  1. XIFAXAN [Suspect]
     Active Substance: RIFAXIMIN
     Indication: IRRITABLE BOWEL SYNDROME
     Dosage: DOSE DECREASED TO ONE TABLET EVERY COUPLE OF DAYS
     Route: 048
     Dates: start: 2019, end: 201908
  2. VITAMIN B1 [Concomitant]
     Active Substance: THIAMINE HYDROCHLORIDE
     Indication: PRODUCT USED FOR UNKNOWN INDICATION
  3. SPIRONOLACTONE. [Concomitant]
     Active Substance: SPIRONOLACTONE
     Indication: PRODUCT USED FOR UNKNOWN INDICATION
  4. FOLIC ACID. [Concomitant]
     Active Substance: FOLIC ACID
     Indication: PRODUCT USED FOR UNKNOWN INDICATION
  5. BUMETANIDE. [Concomitant]
     Active Substance: BUMETANIDE
     Indication: PRODUCT USED FOR UNKNOWN INDICATION
  6. XIFAXAN [Suspect]
     Active Substance: RIFAXIMIN
     Indication: HEPATIC ENCEPHALOPATHY
     Dosage: INTERMITTENTLY (ON AND OFF), LAST FEW MONTHS AGO, TOOK REGULARLY ON A DAILY BASIS
     Route: 048
     Dates: start: 201903, end: 2019

REACTIONS (7)
  - Therapeutic response unexpected [Unknown]
  - Therapy cessation [Unknown]
  - Intentional product use issue [Unknown]
  - Inability to afford medication [Unknown]
  - Insurance issue [Unknown]
  - Hospitalisation [Recovered/Resolved]
  - Intentional dose omission [Unknown]

NARRATIVE: CASE EVENT DATE: 2019
